FAERS Safety Report 13382043 (Version 1)
Quarter: 2017Q1

REPORT INFORMATION
  Report Type: Report from Study
  Country: None (occurrence: KR)
  Receive Date: 20170329
  Receipt Date: 20170329
  Transmission Date: 20170429
  Serious: Yes (Hospitalization)
  Sender: FDA-Public Use
  Company Number: KR-ABBVIE-17P-090-1919029-00

PATIENT
  Age: 60 Year
  Sex: Male
  Weight: 55 kg

DRUGS (10)
  1. HUMIRA [Suspect]
     Active Substance: ADALIMUMAB
     Dosage: ONCE
     Route: 058
     Dates: start: 20161107, end: 20161107
  2. PENTASA [Concomitant]
     Active Substance: MESALAMINE
     Indication: BEHCET^S SYNDROME
     Route: 048
     Dates: start: 20160513
  3. MYPOL [Concomitant]
     Indication: PAIN MANAGEMENT
     Route: 048
     Dates: start: 20170317
  4. HUMIRA [Suspect]
     Active Substance: ADALIMUMAB
     Indication: BEHCET^S SYNDROME
     Dosage: ONCE
     Route: 058
     Dates: start: 20161024, end: 20161024
  5. HUMIRA [Suspect]
     Active Substance: ADALIMUMAB
     Route: 058
     Dates: start: 20161121
  6. METHOTREXATE. [Concomitant]
     Active Substance: METHOTREXATE
     Indication: BEHCET^S SYNDROME
     Route: 048
     Dates: start: 20161010
  7. DILATREND SR [Concomitant]
     Indication: HYPERTENSION
     Route: 048
     Dates: start: 20160808
  8. SOLONDO [Concomitant]
     Active Substance: PREDNISOLONE
     Indication: BEHCET^S SYNDROME
     Route: 048
     Dates: start: 20170314
  9. FOLCID [Concomitant]
     Indication: ANAEMIA PROPHYLAXIS
     Route: 048
     Dates: start: 20160905
  10. MEDILAC DS [Concomitant]
     Indication: BEHCET^S SYNDROME
     Route: 048
     Dates: start: 20160521

REACTIONS (1)
  - Inguinal hernia [Recovered/Resolved]

NARRATIVE: CASE EVENT DATE: 20170227
